FAERS Safety Report 8265363-8 (Version None)
Quarter: 2012Q2

REPORT INFORMATION
  Report Type: 
  Country: None (occurrence: None)
  Receive Date: 20120406
  Receipt Date: 20120403
  Transmission Date: 20120825
  Serious: Yes (Life-Threatening, Hospitalization, Other)
  Sender: FDA-Public Use
  Company Number: JP-ABBOTT-11P-087-0868801-00

PATIENT
  Sex: Male
  Weight: 36 kg

DRUGS (8)
  1. PREDNISOLONE [Concomitant]
     Indication: CROHN'S DISEASE
     Dates: start: 20110412, end: 20111013
  2. MESALAMINE [Concomitant]
     Indication: CROHN'S DISEASE
     Route: 048
     Dates: start: 19970101, end: 20111015
  3. ISONIAZID [Concomitant]
     Indication: PRODUCT USED FOR UNKNOWN INDICATION
     Dates: start: 20110512, end: 20111015
  4. HUMIRA [Suspect]
     Indication: CROHN'S DISEASE
     Route: 058
     Dates: start: 20110512, end: 20110512
  5. HUMIRA [Suspect]
     Dates: start: 20110526, end: 20110526
  6. URSODIOL [Concomitant]
     Indication: PRODUCT USED FOR UNKNOWN INDICATION
     Dates: end: 20111015
  7. HUMIRA [Suspect]
     Dates: start: 20110609, end: 20111015
  8. SULFAMETHOXAZOLE + TRIMETHOPRIM [Concomitant]
     Indication: PRODUCT USED FOR UNKNOWN INDICATION
     Dates: start: 20110915, end: 20111015

REACTIONS (16)
  - ABDOMINAL DISTENSION [None]
  - DISUSE SYNDROME [None]
  - ANAEMIA [None]
  - MUCOUS STOOLS [None]
  - KLEBSIELLA INFECTION [None]
  - EMPHYSEMA [None]
  - HYPOALBUMINAEMIA [None]
  - WEIGHT DECREASED [None]
  - HYPOKALAEMIA [None]
  - HEPATIC FUNCTION ABNORMAL [None]
  - SEPTIC SHOCK [None]
  - DISSEMINATED INTRAVASCULAR COAGULATION [None]
  - DECREASED APPETITE [None]
  - HAEMORRHAGIC DISORDER [None]
  - DIARRHOEA [None]
  - HYPOPHAGIA [None]
